FAERS Safety Report 6733036-6 (Version None)
Quarter: 2010Q2

REPORT INFORMATION
  Report Type: 
  Country: None (occurrence: None)
  Receive Date: 20100517
  Receipt Date: 20100503
  Transmission Date: 20101027
  Serious: Yes (Hospitalization, Other)
  Sender: FDA-Public Use
  Company Number: 2010AL002699

PATIENT
  Age: 62 Year
  Sex: Female

DRUGS (6)
  1. DIAZEMPAM            USP [Suspect]
     Indication: DRUG USE FOR UNKNOWN INDICATION
     Dosage: 5 MG, QD, PO
     Route: 048
  2. NITRAZEPAM [Concomitant]
  3. ATROVENT [Concomitant]
  4. VENTOLIN [Concomitant]
  5. DOXYFERM [Concomitant]
  6. PREDNISOLONE [Concomitant]

REACTIONS (4)
  - ANXIETY [None]
  - CHRONIC OBSTRUCTIVE PULMONARY DISEASE [None]
  - PNEUMONIA [None]
  - RESPIRATORY DEPRESSION [None]
